FAERS Safety Report 11785142 (Version 1)
Quarter: 2015Q4

REPORT INFORMATION
  Report Type: Spontaneous
  Country: US (occurrence: None)
  Receive Date: 20151125
  Receipt Date: 20151125
  Transmission Date: 20160305
  Serious: Yes (Disabling)
  Sender: FDA-Public Use
  Company Number: None

PATIENT
  Age: 61 Year
  Sex: Female
  Weight: 45.36 kg

DRUGS (4)
  1. ADVIL [Concomitant]
     Active Substance: IBUPROFEN
  2. HERBAL NOS [Concomitant]
     Active Substance: HERBALS
  3. CIPRO [Suspect]
     Active Substance: CIPROFLOXACIN HYDROCHLORIDE
     Indication: URINARY TRACT INFECTION
     Dosage: 20
     Route: 048
     Dates: start: 20151008, end: 20151016
  4. SUPPLEMENTS [Concomitant]
     Active Substance: UNSPECIFIED INGREDIENT

REACTIONS (15)
  - Vaginal infection [None]
  - Hypoaesthesia [None]
  - Balance disorder [None]
  - Pyrexia [None]
  - Rash pruritic [None]
  - Abdominal pain upper [None]
  - Loss of employment [None]
  - Immune system disorder [None]
  - Nausea [None]
  - Migraine [None]
  - Vomiting [None]
  - Chromaturia [None]
  - Drug ineffective [None]
  - Chest pain [None]
  - Dizziness [None]

NARRATIVE: CASE EVENT DATE: 20151006
